FAERS Safety Report 6812117-2 (Version None)
Quarter: 2010Q3

REPORT INFORMATION
  Report Type: 
  Country: None (occurrence: None)
  Receive Date: 20100701
  Receipt Date: 20090925
  Transmission Date: 20110219
  Serious: No
  Sender: FDA-Public Use
  Company Number: US-ABBOTT-09P-163-0599819-00

PATIENT
  Age: 62 Year
  Sex: Female

DRUGS (4)
  1. NORVIR [Suspect]
     Indication: HIV INFECTION
     Dates: start: 20020101, end: 20090922
  2. VERIAD [Concomitant]
     Indication: HIV INFECTION
     Dates: end: 20090922
  3. EPIVIR [Concomitant]
     Indication: HIV INFECTION
     Dates: end: 20090922
  4. REATES [Concomitant]
     Indication: HIV INFECTION
     Dates: end: 20090922

REACTIONS (8)
  - ALANINE AMINOTRANSFERASE INCREASED [None]
  - BLOOD CREATINE INCREASED [None]
  - DIZZINESS [None]
  - GLOMERULAR FILTRATION RATE DECREASED [None]
  - LIPIDS INCREASED [None]
  - LIVER DISORDER [None]
  - MUSCULAR WEAKNESS [None]
  - URINE ANALYSIS ABNORMAL [None]
